FAERS Safety Report 12389440 (Version 2)
Quarter: 2016Q2

REPORT INFORMATION
  Report Type: Report from Study
  Country: IT (occurrence: IT)
  Receive Date: 20160520
  Receipt Date: 20160609
  Transmission Date: 20160815
  Serious: Yes (Hospitalization)
  Sender: FDA-Public Use
  Company Number: IT-EISAI MEDICAL RESEARCH-EC-2016-016916

PATIENT
  Age: 63 Year
  Sex: Male
  Weight: 79 kg

DRUGS (19)
  1. LENVATINIB [Suspect]
     Active Substance: LENVATINIB
     Indication: THYROID CANCER METASTATIC
     Route: 048
     Dates: start: 20160324, end: 20160329
  2. OSIPINE [Concomitant]
     Active Substance: BARNIDIPINE HYDROCHLORIDE
  3. ROCALTROL [Concomitant]
     Active Substance: CALCITRIOL
  4. FERROUS SULFATE. [Concomitant]
     Active Substance: FERROUS SULFATE
  5. EUTIROX [Concomitant]
     Active Substance: LEVOTHYROXINE SODIUM
  6. LENVATINIB [Suspect]
     Active Substance: LENVATINIB
     Route: 048
     Dates: start: 20160401, end: 20160414
  7. LENVATINIB [Suspect]
     Active Substance: LENVATINIB
     Route: 048
     Dates: start: 20160417, end: 20160513
  8. CALCIO CARBONATO [Concomitant]
  9. FLUCONAZOLO [Concomitant]
  10. DELTACORTENE [Concomitant]
     Active Substance: PREDNISONE
  11. LYRICA [Concomitant]
     Active Substance: PREGABALIN
  12. FUROSEMIDE. [Concomitant]
     Active Substance: FUROSEMIDE
  13. VALPRESSION [Concomitant]
     Active Substance: VALSARTAN
  14. LANSOPRAZOLO [Concomitant]
     Active Substance: LANSOPRAZOLE
  15. PREDNISONE. [Concomitant]
     Active Substance: PREDNISONE
  16. TARGIN [Concomitant]
     Active Substance: NALOXONE HYDROCHLORIDE\OXYCODONE HYDROCHLORIDE
  17. CIPROFLOXACINA [Concomitant]
     Active Substance: CIPROFLOXACIN
  18. OMEPRAZOLO [Concomitant]
     Active Substance: OMEPRAZOLE
  19. CALCIJEX [Concomitant]
     Active Substance: CALCITRIOL

REACTIONS (2)
  - Hypocalcaemia [Recovered/Resolved]
  - Diarrhoea [Recovered/Resolved]

NARRATIVE: CASE EVENT DATE: 20160513
